FAERS Safety Report 19509891 (Version 3)
Quarter: 2024Q1

REPORT INFORMATION
  Report Type: Report from Study
  Country: US (occurrence: US)
  Receive Date: 20210708
  Receipt Date: 20240117
  Transmission Date: 20240409
  Serious: No
  Sender: FDA-Public Use
  Company Number: US-KYOWAKIRIN-2021BKK011909

PATIENT

DRUGS (3)
  1. BUROSUMAB [Suspect]
     Active Substance: BUROSUMAB
     Indication: Hereditary hypophosphataemic rickets
     Dosage: 60 MG, 1X/2 WEEKS
     Route: 058
     Dates: start: 2018
  2. BUROSUMAB [Suspect]
     Active Substance: BUROSUMAB
     Indication: Hereditary hypophosphataemic rickets
     Dosage: UNK, 1X/4 WEEKS
     Route: 065
     Dates: start: 20181221
  3. MONOPRIL [Concomitant]
     Active Substance: FOSINOPRIL SODIUM
     Indication: Blood pressure abnormal
     Dosage: UNK
     Route: 065

REACTIONS (2)
  - Restless legs syndrome [Recovering/Resolving]
  - Pulpless tooth [Unknown]
